FAERS Safety Report 4790851-6 (Version None)
Quarter: 2005Q3

REPORT INFORMATION
  Report Type: 
  Country: None (occurrence: None)
  Receive Date: 20050914
  Receipt Date: 20040827
  Transmission Date: 20060218
  Serious: Yes (Death)
  Sender: FDA-Public Use
  Company Number: 163-20785-04080556

PATIENT
  Age: 86 Year
  Sex: Female

DRUGS (2)
  1. THALOMID [Suspect]
     Indication: MULTIPLE MYELOMA
     Dosage: 200 MG, DAILY; ORAL; 150 MG, DAILY; ORAL
     Route: 048
     Dates: end: 20040405
  2. THALOMID [Suspect]
     Indication: MULTIPLE MYELOMA
     Dosage: 200 MG, DAILY; ORAL; 150 MG, DAILY; ORAL
     Route: 048
     Dates: start: 20030529

REACTIONS (3)
  - ACETABULUM FRACTURE [None]
  - DEATH [None]
  - DISEASE PROGRESSION [None]
